FAERS Safety Report 19003064 (Version 4)
Quarter: 2022Q1

REPORT INFORMATION
  Report Type: Report from Study
  Country: US (occurrence: US)
  Receive Date: 20210312
  Receipt Date: 20220324
  Transmission Date: 20220424
  Serious: Yes (Hospitalization, Other)
  Sender: FDA-Public Use
  Company Number: US-JNJFOC-20210310101

PATIENT
  Sex: Female
  Weight: 86.4 kg

DRUGS (5)
  1. OPSUMIT [Suspect]
     Active Substance: MACITENTAN
     Indication: Pulmonary hypertension
     Dosage: OPSUMIT 10MG ORALLY DAILY
     Route: 048
  2. OPSUMIT [Suspect]
     Active Substance: MACITENTAN
     Route: 048
  3. TYVASO [Concomitant]
     Active Substance: TREPROSTINIL
  4. ELIQUIS [Concomitant]
     Active Substance: APIXABAN
  5. TADALAFIL [Concomitant]
     Active Substance: TADALAFIL

REACTIONS (10)
  - Cataract [Unknown]
  - Systemic lupus erythematosus [Unknown]
  - Cholecystectomy [Unknown]
  - Adverse event [Unknown]
  - Gastrointestinal sounds abnormal [Unknown]
  - Gout [Unknown]
  - Memory impairment [Unknown]
  - Weight decreased [Unknown]
  - Weight increased [Unknown]
  - Abdominal discomfort [Unknown]

NARRATIVE: CASE EVENT DATE: 20210101
